FAERS Safety Report 19551474 (Version 1)
Quarter: 2021Q3

REPORT INFORMATION
  Report Type: Spontaneous
  Country: CA (occurrence: CA)
  Receive Date: 20210714
  Receipt Date: 20210714
  Transmission Date: 20211014
  Serious: Yes (Hospitalization)
  Sender: FDA-Public Use
  Company Number: CA-PFIZER INC-002-0073-970005

PATIENT
  Age: 63 Year
  Sex: Female

DRUGS (8)
  1. VALPROIC ACID. [Concomitant]
     Active Substance: VALPROIC ACID
     Dosage: 375 MG, 3X/DAY
  2. CLOBAZAM. [Concomitant]
     Active Substance: CLOBAZAM
     Dosage: 5 MG, 2X/DAY
  3. NAPROXEN. [Concomitant]
     Active Substance: NAPROXEN
     Dosage: 250 MG, 3X/DAY
  4. PHENYTOIN. [Suspect]
     Active Substance: PHENYTOIN
     Indication: FOCAL DYSCOGNITIVE SEIZURES
     Dosage: 500 MG, DAILY (200 MG IN THE MORNING AND 300 MG AT BEDTIME)
     Route: 048
  5. TRIFLUOPERAZINE [Concomitant]
     Active Substance: TRIFLUOPERAZINE HYDROCHLORIDE
     Dosage: 10 MG, 3X/DAY
  6. MISOPROSTOL. [Concomitant]
     Active Substance: MISOPROSTOL
     Dosage: 200 UG, 3X/DAY
  7. ACETAMINOPHEN AND CODEINE [Concomitant]
     Active Substance: ACETAMINOPHEN\CODEINE PHOSPHATE
     Dosage: 325/30 MG; 1?2 TABLETS THREE TIMES A DAY
  8. PHENYTOIN. [Suspect]
     Active Substance: PHENYTOIN
     Dosage: 400 MG, DAILY (THE DOSE WAS DECREASED TO 400 MG AT BEDTIME)

REACTIONS (2)
  - Thyroxine decreased [Recovered/Resolved]
  - Toxicity to various agents [Recovered/Resolved]
